FAERS Safety Report 20551395 (Version 1)
Quarter: 2022Q1

REPORT INFORMATION
  Report Type: Spontaneous
  Country: GB (occurrence: GB)
  Receive Date: 20220304
  Receipt Date: 20220304
  Transmission Date: 20220423
  Serious: Yes (Other)
  Sender: FDA-Public Use
  Company Number: GB-MHRA-MED-202202161009481540-0JY6W

PATIENT
  Age: 56 Year
  Sex: Female

DRUGS (2)
  1. ARIPIPRAZOLE [Suspect]
     Active Substance: ARIPIPRAZOLE
     Indication: Product used for unknown indication
     Dosage: UNK, TWO TIMES A DAY (15MG (1DF) IN THE MORNING AND 7.5MG (0.5 DF) AT NIGHT)
     Route: 065
  2. DULOXETINE [Suspect]
     Active Substance: DULOXETINE
     Indication: Product used for unknown indication
     Dosage: 30 MILLIGRAM, TWO TIMES A DAY
     Route: 065

REACTIONS (3)
  - Back pain [Unknown]
  - Discomfort [Unknown]
  - Spinal pain [Unknown]
